FAERS Safety Report 6572667-3 (Version None)
Quarter: 2010Q1

REPORT INFORMATION
  Report Type: 
  Country: None (occurrence: None)
  Receive Date: 20100205
  Receipt Date: 20100202
  Transmission Date: 20100710
  Serious: Yes (Hospitalization)
  Sender: FDA-Public Use
  Company Number: US-GILEAD-2010-0026825

PATIENT
  Sex: Female
  Weight: 44.5 kg

DRUGS (14)
  1. LETAIRIS [Suspect]
     Indication: PULMONARY ARTERIAL HYPERTENSION
     Route: 048
     Dates: start: 20100108, end: 20100126
  2. FLOLAN [Concomitant]
  3. REVATIO [Concomitant]
  4. FUROSEMIDE [Concomitant]
  5. METOLAZONE [Concomitant]
  6. SPIRONOLACTONE [Concomitant]
  7. DIGOXIN [Concomitant]
  8. ONDANSETRON [Concomitant]
  9. METFORMIN HCL [Concomitant]
  10. POTASSIUM CHLORIDE [Concomitant]
  11. PRILOSEC [Concomitant]
  12. CRESTOR [Concomitant]
  13. MULTIVITAL [Concomitant]
  14. TRIGLIDE [Concomitant]

REACTIONS (4)
  - BLOOD CREATININE INCREASED [None]
  - BLOOD POTASSIUM INCREASED [None]
  - HEART RATE DECREASED [None]
  - PRESYNCOPE [None]
